FAERS Safety Report 12607954 (Version 2)
Quarter: 2016Q3

REPORT INFORMATION
  Report Type: Spontaneous
  Country: JP (occurrence: JP)
  Receive Date: 20160729
  Receipt Date: 20160729
  Transmission Date: 20161109
  Serious: Yes (Other)
  Sender: FDA-Public Use
  Company Number: JP-MYLANLABS-2014M1002513

PATIENT

DRUGS (4)
  1. METHYLPREDISOLONE [Suspect]
     Active Substance: METHYLPREDNISOLONE
     Dosage: 12 MG, 3XW, AT 38 YEARS
     Route: 048
  2. PREDNISOLONE MYLAN [Suspect]
     Active Substance: PREDNISOLONE
     Indication: NEPHROTIC SYNDROME
     Dosage: UNK
     Route: 048
  3. METHYLPREDISOLONE [Suspect]
     Active Substance: METHYLPREDNISOLONE
     Dosage: 4 MG, 3XW, AT 39 YEARS
     Route: 048
  4. METHYLPREDISOLONE [Suspect]
     Active Substance: METHYLPREDNISOLONE
     Indication: NEPHROTIC SYNDROME

REACTIONS (1)
  - Steroid withdrawal syndrome [Recovering/Resolving]
